FAERS Safety Report 23200021 (Version 1)
Quarter: 2023Q4

REPORT INFORMATION
  Report Type: Spontaneous
  Country: US (occurrence: US)
  Receive Date: 20231117
  Receipt Date: 20231117
  Transmission Date: 20240109
  Serious: Yes (Hospitalization, Other)
  Sender: FDA-Public Use
  Company Number: US-MLMSERVICE-20231102-4638488-1

PATIENT
  Age: 57 Year
  Sex: Female

DRUGS (6)
  1. CELECOXIB [Suspect]
     Active Substance: CELECOXIB
     Indication: Nasal sinus cancer
     Dosage: 200 MILLIGRAM, ONCE A DAY
     Route: 065
     Dates: start: 20170726, end: 2017
  2. CELECOXIB [Suspect]
     Active Substance: CELECOXIB
     Indication: Metastases to liver
  3. PEMBROLIZUMAB [Concomitant]
     Active Substance: PEMBROLIZUMAB
     Indication: Metastases to liver
     Dosage: 10 MILLIGRAM/KILOGRAM 5 CYCLES, EVERY 3 WEEKS
     Route: 065
     Dates: start: 20170503, end: 20170816
  4. PEMBROLIZUMAB [Concomitant]
     Active Substance: PEMBROLIZUMAB
     Indication: Nasal sinus cancer
     Dosage: 200 MILLIGRAM EVERY 3 WEEKS
     Route: 065
     Dates: start: 20170816, end: 20170908
  5. IPILIMUMAB [Concomitant]
     Active Substance: IPILIMUMAB
     Indication: Nasal sinus cancer
     Dosage: 1 MILLIGRAM/KILOGRAM EVERY 3 WEEKS
     Route: 065
     Dates: start: 20170816, end: 20170908
  6. IPILIMUMAB [Concomitant]
     Active Substance: IPILIMUMAB
     Indication: Metastases to liver

REACTIONS (1)
  - Autoimmune hepatitis [Recovered/Resolved]

NARRATIVE: CASE EVENT DATE: 20170901
